FAERS Safety Report 7259225-2 (Version None)
Quarter: 2011Q1

REPORT INFORMATION
  Report Type: 
  Country: None (occurrence: None)
  Receive Date: 20110129
  Receipt Date: 20100812
  Transmission Date: 20110831
  Serious: No
  Sender: FDA-Public Use
  Company Number: US-ABBOTT-10P-163-0664017-00

PATIENT
  Sex: Female
  Weight: 64.468 kg

DRUGS (3)
  1. HUMIRA [Suspect]
     Indication: CROHN'S DISEASE
     Dates: start: 20091101
  2. UNKNOWN MEDICATION [Concomitant]
     Indication: GOUT
     Route: 050
  3. NORVASC [Concomitant]
     Indication: HYPERTENSION

REACTIONS (2)
  - FATIGUE [None]
  - BACK PAIN [None]
